FAERS Safety Report 10339846 (Version 1)
Quarter: 2014Q3

REPORT INFORMATION
  Report Type: Spontaneous
  Country: US (occurrence: None)
  Receive Date: 20140723
  Receipt Date: 20140723
  Transmission Date: 20150326
  Serious: Yes (Other)
  Sender: FDA-Public Use
  Company Number: None

PATIENT
  Age: 36 Year
  Sex: Male
  Weight: 79.38 kg

DRUGS (1)
  1. LEVAQUIN [Suspect]
     Active Substance: LEVOFLOXACIN
     Indication: EAR INFECTION
     Dosage: 1  QD ORAL
     Route: 048

REACTIONS (7)
  - Muscle spasms [None]
  - Muscle tightness [None]
  - Hypoaesthesia [None]
  - Accidental overdose [None]
  - Asthenia [None]
  - Ear discomfort [None]
  - Pain in extremity [None]

NARRATIVE: CASE EVENT DATE: 20140709
